FAERS Safety Report 8192820-5 (Version None)
Quarter: 2012Q1

REPORT INFORMATION
  Report Type: 
  Country: None (occurrence: None)
  Receive Date: 20120308
  Receipt Date: 20120305
  Transmission Date: 20120608
  Serious: No
  Sender: FDA-Public Use
  Company Number: US-PFIZER INC-2012058814

PATIENT
  Sex: Female
  Weight: 65.306 kg

DRUGS (7)
  1. NEURONTIN [Suspect]
     Indication: BURNING SENSATION
  2. CELEBREX [Suspect]
     Indication: ARTHRITIS
     Dosage: 200 MG, DAILY
     Dates: start: 20020101, end: 20110101
  3. IBUPROFEN [Concomitant]
     Indication: ARTHRITIS
     Dosage: 800 MG, AS NEEDED
  4. LIPITOR [Suspect]
     Indication: BLOOD CHOLESTEROL INCREASED
     Dosage: 40 MG, DAILY
     Dates: start: 20060101
  5. RESTORIL [Concomitant]
     Indication: SLEEP DISORDER
     Dosage: 15 MG, DAILY
  6. NEURONTIN [Suspect]
     Indication: NEURALGIA
     Dosage: UNK, DAILY
  7. SYNTHROID [Concomitant]
     Indication: THYROID DISORDER
     Dosage: 50 MG, DAILY

REACTIONS (2)
  - DRUG INEFFECTIVE [None]
  - BURNING SENSATION [None]
